APPROVED DRUG PRODUCT: POLYSPORIN
Active Ingredient: BACITRACIN ZINC; POLYMYXIN B SULFATE
Strength: 500 UNITS/GM;10,000 UNITS/GM **Federal Register determination that product was not discontinued or withdrawn for s or e reasons**
Dosage Form/Route: OINTMENT;OPHTHALMIC
Application: A061229 | Product #001
Applicant: MONARCH PHARMACEUTICALS INC
Approved: Approved Prior to Jan 1, 1982 | RLD: No | RS: No | Type: DISCN